FAERS Safety Report 10426483 (Version 1)
Quarter: 2014Q3

REPORT INFORMATION
  Report Type: Spontaneous
  Country: US (occurrence: None)
  Receive Date: 20140902
  Receipt Date: 20140902
  Transmission Date: 20150326
  Serious: Yes (Life-Threatening, Disabling, Other)
  Sender: FDA-Public Use
  Company Number: None

PATIENT
  Age: 44 Year
  Sex: Female
  Weight: 52.16 kg

DRUGS (1)
  1. EXALGO [Suspect]
     Active Substance: HYDROMORPHONE HYDROCHLORIDE
     Indication: PAIN
     Dosage: 2   TWICE DAILY TAKEN BY MOUTH
     Route: 048

REACTIONS (4)
  - Medication residue present [None]
  - Pain [None]
  - Intestinal obstruction [None]
  - Constipation [None]

NARRATIVE: CASE EVENT DATE: 20140822
